FAERS Safety Report 21213713 (Version 2)
Quarter: 2023Q1

REPORT INFORMATION
  Report Type: Report from Study
  Country: CA (occurrence: CA)
  Receive Date: 20220816
  Receipt Date: 20230203
  Transmission Date: 20230417
  Serious: Yes (Hospitalization)
  Sender: FDA-Public Use
  Company Number: CA-JNJFOC-20220820696

PATIENT
  Age: 57 Year
  Sex: Female
  Weight: 79 kg

DRUGS (1)
  1. REMICADE [Suspect]
     Active Substance: INFLIXIMAB
     Indication: Crohn^s disease
     Route: 041
     Dates: start: 20150312

REACTIONS (3)
  - Clostridium difficile infection [Recovering/Resolving]
  - Bedridden [Unknown]
  - Off label use [Unknown]

NARRATIVE: CASE EVENT DATE: 20150312
